FAERS Safety Report 18843570 (Version 1)
Quarter: 2021Q1

REPORT INFORMATION
  Report Type: Spontaneous
  Country: US (occurrence: US)
  Receive Date: 20210203
  Receipt Date: 20210203
  Transmission Date: 20210419
  Serious: Yes (Other)
  Sender: FDA-Public Use
  Company Number: None

PATIENT
  Age: 65 Year
  Sex: Male
  Weight: 150.59 kg

DRUGS (12)
  1. DICLOFENAC SODIUM TOPICAL GEL [Suspect]
     Active Substance: DICLOFENAC SODIUM
     Indication: RASH
     Dosage: ?          QUANTITY:2 G GRAM(S);?
     Route: 061
     Dates: start: 20210201, end: 20210203
  2. LOW DOSE ASPIRIN [Concomitant]
     Active Substance: ASPIRIN
  3. AMLODIPINE [Concomitant]
     Active Substance: AMLODIPINE BESYLATE
  4. METFORMIN [Concomitant]
     Active Substance: METFORMIN HYDROCHLORIDE
  5. BICALUTAMIDE. [Concomitant]
     Active Substance: BICALUTAMIDE
  6. TAMULOSIN [Concomitant]
     Active Substance: TAMSULOSIN
  7. PRAVASTATIN. [Concomitant]
     Active Substance: PRAVASTATIN
  8. IISONPRIL [Concomitant]
  9. CARVEDILOL. [Concomitant]
     Active Substance: CARVEDILOL
  10. SPIRNOLATONE [Concomitant]
  11. MAGNESIUM [Concomitant]
     Active Substance: MAGNESIUM
  12. VITAMIN D3 [Concomitant]
     Active Substance: CHOLECALCIFEROL

REACTIONS (2)
  - Rash [None]
  - Peripheral swelling [None]

NARRATIVE: CASE EVENT DATE: 20210203
